FAERS Safety Report 5108977-6 (Version None)
Quarter: 2006Q3

REPORT INFORMATION
  Report Type: 
  Country: None (occurrence: None)
  Receive Date: 20060918
  Receipt Date: 20060829
  Transmission Date: 20061208
  Serious: Yes (Other)
  Sender: FDA-Public Use
  Company Number: US200608006490

PATIENT
  Sex: Male
  Weight: 56.7 kg

DRUGS (10)
  1. HUMALOG [Suspect]
     Indication: DIABETES MELLITUS
     Dosage: AS NEEDED ; 40 MG EACH EVENING ; EACH EVENING
     Dates: start: 20060501, end: 20060101
  2. HUMALOG [Suspect]
     Indication: DIABETES MELLITUS
     Dosage: AS NEEDED ; 40 MG EACH EVENING ; EACH EVENING
     Dates: end: 20060401
  3. HUMALOG [Suspect]
     Indication: DIABETES MELLITUS
     Dosage: AS NEEDED ; 40 MG EACH EVENING ; EACH EVENING
     Dates: start: 20030101
  4. CYMBALTA [Suspect]
     Dosage: 40 MG
     Dates: start: 20060701
  5. ASA (ASPIRIN (ACETYLSALICYLIC ACID) [Concomitant]
  6. ZETIA [Concomitant]
  7. LASIX [Concomitant]
  8. LANTUS [Concomitant]
  9. NITROGLYCERINUM (GLYCERYL TRINITRATE) [Concomitant]
  10. NASONEX [Concomitant]

REACTIONS (8)
  - ASTHMA [None]
  - ATRIAL FIBRILLATION [None]
  - CHRONIC OBSTRUCTIVE PULMONARY DISEASE [None]
  - DIABETIC BULLOSIS [None]
  - HYPERTENSION [None]
  - INTERNATIONAL NORMALISED RATIO INCREASED [None]
  - MULTIPLE ALLERGIES [None]
  - MYOCARDIAL INFARCTION [None]
